FAERS Safety Report 9508420 (Version 1)
Quarter: 2013Q3

REPORT INFORMATION
  Report Type: Spontaneous
  Country: FR (occurrence: None)
  Receive Date: 20130905
  Receipt Date: 20130905
  Transmission Date: 20140515
  Serious: Yes (Hospitalization)
  Sender: FDA-Public Use
  Company Number: 1869198

PATIENT
  Age: 49 Year
  Sex: Female

DRUGS (8)
  1. CARBOPLATIN [Suspect]
     Indication: OVARIAN CANCER
     Route: 042
     Dates: start: 20130318, end: 20130430
  2. AVASTIN /00848101/ [Concomitant]
  3. PACLITAXEL [Concomitant]
  4. AZANTAC [Concomitant]
  5. POLARAMINE [Concomitant]
  6. ZOPHREN /00955301/ [Concomitant]
  7. EMEND /01627301/ [Concomitant]
  8. SOLUMEDROL [Concomitant]

REACTIONS (3)
  - Dyspnoea [None]
  - Oxygen saturation decreased [None]
  - Rash [None]
